FAERS Safety Report 7343303-3 (Version None)
Quarter: 2011Q1

REPORT INFORMATION
  Report Type: 
  Country: None (occurrence: None)
  Receive Date: 20110301
  Receipt Date: 20110216
  Transmission Date: 20110831
  Serious: Yes (Other)
  Sender: FDA-Public Use
  Company Number: JP-2011-10195

PATIENT
  Age: 44 Year
  Sex: Male
  Weight: 50 kg

DRUGS (10)
  1. LASIX [Suspect]
     Indication: CARDIAC FAILURE
     Dosage: 120 MG MILLIGRAM(S), DAILY DOSE, ORAL
     Route: 048
  2. BEPRICOR (BEPRIDIL HYDROCHLORIDE) [Concomitant]
  3. WARFARIN (WARFARIN POTASSIUM) [Concomitant]
  4. MUCOSTA (REBAMIPIDE) [Concomitant]
  5. DIOVAN [Concomitant]
  6. ARTIST (CARVEDILOL) [Concomitant]
  7. PRIMOBENDAN (PIMOBENDEN) [Concomitant]
  8. SAMSCA [Suspect]
     Indication: CONGESTIVE CARDIOMYOPATHY
     Dosage: 7.5 MG MILLIGRAM(S), QD, ORAL
     Route: 048
     Dates: start: 20110125, end: 20110131
  9. MEXITIL [Concomitant]
  10. TAGAMET [Concomitant]

REACTIONS (6)
  - RENAL IMPAIRMENT [None]
  - DEHYDRATION [None]
  - DIARRHOEA [None]
  - HYPONATRAEMIA [None]
  - CARDIOVASCULAR DISORDER [None]
  - ABDOMINAL PAIN [None]
